FAERS Safety Report 15478674 (Version 1)
Quarter: 2018Q4

REPORT INFORMATION
  Report Type: Spontaneous
  Country: CA (occurrence: CA)
  Receive Date: 20181009
  Receipt Date: 20181009
  Transmission Date: 20190205
  Serious: Yes (Other)
  Sender: FDA-Public Use
  Company Number: CA-PFIZER INC-2018403257

PATIENT
  Age: 31 Year
  Sex: Female

DRUGS (1)
  1. HYDROMORPHONE HYDROCHLORIDE. [Suspect]
     Active Substance: HYDROMORPHONE HYDROCHLORIDE
     Dosage: UNK
     Route: 042

REACTIONS (9)
  - Drug dependence [Unknown]
  - Pain in extremity [Unknown]
  - Drug abuse [Unknown]
  - Abdominal pain upper [Unknown]
  - Bone pain [Unknown]
  - Hyperhidrosis [Unknown]
  - Decreased appetite [Unknown]
  - Drug withdrawal syndrome [Unknown]
  - Influenza like illness [Unknown]
